FAERS Safety Report 18176541 (Version 1)
Quarter: 2020Q3

REPORT INFORMATION
  Report Type: Spontaneous
  Country: US (occurrence: US)
  Receive Date: 20200820
  Receipt Date: 20200820
  Transmission Date: 20201103
  Serious: Yes (Other)
  Sender: FDA-Public Use
  Company Number: US-MYLANLABS-2020M1072164

PATIENT
  Age: 50 Year
  Sex: Female

DRUGS (1)
  1. ESOMEPRAZOLE. [Suspect]
     Active Substance: ESOMEPRAZOLE MAGNESIUM
     Indication: DRUG THERAPY
     Dosage: 40 MILLIGRAM, BID ESOMEPRAZOLE 40MG TWICE A DAY
     Route: 065

REACTIONS (3)
  - Hypocalcaemia [Recovered/Resolved]
  - Stridor [Recovered/Resolved]
  - Respiratory distress [Recovered/Resolved]
